FAERS Safety Report 15507801 (Version 1)
Quarter: 2018Q4

REPORT INFORMATION
  Report Type: Report from Study
  Country: US (occurrence: US)
  Receive Date: 20181016
  Receipt Date: 20181016
  Transmission Date: 20190205
  Serious: Yes (Hospitalization, Other)
  Sender: FDA-Public Use
  Company Number: US-GILEAD-2018-0368171

PATIENT
  Age: 86 Year
  Sex: Female

DRUGS (19)
  1. MECLIZINE [Concomitant]
     Active Substance: MECLIZINE HYDROCHLORIDE
  2. AMLODIPINE [Concomitant]
     Active Substance: AMLODIPINE BESYLATE
  3. MIRALAX [Concomitant]
     Active Substance: POLYETHYLENE GLYCOL 3350
  4. IBUPROFEN. [Concomitant]
     Active Substance: IBUPROFEN
  5. PRILOSEC [Concomitant]
     Active Substance: OMEPRAZOLE MAGNESIUM
  6. VITAMINS WITH MINERALS [Concomitant]
     Active Substance: MINERALS\VITAMINS
  7. HYOSCYAMINE. [Concomitant]
     Active Substance: HYOSCYAMINE
  8. NAPROXEN. [Concomitant]
     Active Substance: NAPROXEN
  9. PREDNISONE. [Concomitant]
     Active Substance: PREDNISONE
  10. ASCORBIC ACID. [Concomitant]
     Active Substance: ASCORBIC ACID
  11. PRESERVISION [Concomitant]
     Active Substance: MINERALS\VITAMINS
  12. IDELALISIB [Suspect]
     Active Substance: IDELALISIB
     Indication: CHRONIC LYMPHOCYTIC LEUKAEMIA
     Dosage: 150 MG, BID
     Route: 065
     Dates: start: 20180316
  13. LOSARTAN. [Concomitant]
     Active Substance: LOSARTAN
  14. TYLENOL [Concomitant]
     Active Substance: ACETAMINOPHEN
  15. ATIVAN [Concomitant]
     Active Substance: LORAZEPAM
  16. CYANOCOBALAMIN. [Concomitant]
     Active Substance: CYANOCOBALAMIN
  17. METOPROLOL. [Concomitant]
     Active Substance: METOPROLOL
  18. HYDROCHLOROTHIAZIDE. [Concomitant]
     Active Substance: HYDROCHLOROTHIAZIDE
  19. COLACE [Concomitant]
     Active Substance: DOCUSATE SODIUM

REACTIONS (2)
  - Central nervous system infection [Unknown]
  - Pulmonary mycosis [Unknown]
